FAERS Safety Report 13640767 (Version 2)
Quarter: 2017Q2

REPORT INFORMATION
  Report Type: Spontaneous
  Country: FR (occurrence: FR)
  Receive Date: 20170612
  Receipt Date: 20170620
  Transmission Date: 20170830
  Serious: Yes (Hospitalization, Other)
  Sender: FDA-Public Use
  Company Number: FR-BAXTER-2017BAX022712

PATIENT
  Age: 33 Year
  Sex: Female

DRUGS (25)
  1. ENDOXAN 1000 MG, POUDRE POUR SOLUTION INJECTABLE [Suspect]
     Active Substance: CYCLOPHOSPHAMIDE
     Indication: B-CELL TYPE ACUTE LEUKAEMIA
     Dosage: GRAALL PROTOCOL; 750 MG/M2 ON DAY 1 OF INDUCTION CHEMOTHERAPY
     Route: 042
     Dates: start: 20170421
  2. CERUBIDINE [Suspect]
     Active Substance: DAUNORUBICIN HYDROCHLORIDE
     Dosage: GRAALL PROTOCOL; 30 MG/M2 ON DAY 15 OF INDUCTION CHEMOTHERAPY
     Route: 042
     Dates: start: 20170505
  3. MESNA EG [Suspect]
     Active Substance: MESNA
     Indication: PROPHYLAXIS
     Dosage: INFUSION
     Route: 042
     Dates: start: 20170421, end: 20170505
  4. FLUOXETINE ARROW [Suspect]
     Active Substance: FLUOXETINE HYDROCHLORIDE
     Indication: DEPRESSION
     Route: 048
     Dates: start: 20170429, end: 20170519
  5. PREDNISONE. [Suspect]
     Active Substance: PREDNISONE
     Indication: PRODUCT USED FOR UNKNOWN INDICATION
     Route: 065
     Dates: start: 20170412
  6. METHOTREXATE. [Suspect]
     Active Substance: METHOTREXATE
     Indication: PRODUCT USED FOR UNKNOWN INDICATION
     Route: 065
     Dates: start: 20170426
  7. VINCRISTINE TEVA [Suspect]
     Active Substance: VINCRISTINE
     Dosage: GRAALL PROTOCOL; ON DAY 8 OF INDUCTION CHEMOTHERAPY
     Route: 042
     Dates: start: 20170428
  8. MIDAZOLAM [Suspect]
     Active Substance: MIDAZOLAM HYDROCHLORIDE
     Indication: ANXIETY
     Dosage: UNIT DOSE: IF NEEDED; DOSAGE FORM: SOLUTION FOR INJECTION (IV-IM) OR RECTAL SOLUTION
     Route: 042
     Dates: start: 20170419, end: 20170519
  9. CYTARABINE. [Suspect]
     Active Substance: CYTARABINE
     Indication: PRODUCT USED FOR UNKNOWN INDICATION
     Route: 065
     Dates: start: 20170426
  10. CERUBIDINE [Suspect]
     Active Substance: DAUNORUBICIN HYDROCHLORIDE
     Dosage: GRAALL PROTOCOL; ON DAY 2 OF INDUCTION CHEMOTHERAPY
     Route: 042
     Dates: start: 20170422
  11. CERUBIDINE [Suspect]
     Active Substance: DAUNORUBICIN HYDROCHLORIDE
     Dosage: GRAALL PROTOCOL; ON DAY 3 OF INDUCTION CHEMOTHERAPY
     Route: 042
     Dates: start: 20170423
  12. KIDROLASE [Suspect]
     Active Substance: ASPARAGINASE
     Indication: B-CELL TYPE ACUTE LEUKAEMIA
     Dosage: GRAALL PROTOCOL; 6000 IU/M2 ON DAY 8 OF INDUCTION CHEMOTHERAPY
     Route: 042
     Dates: start: 20170428
  13. VINCRISTINE TEVA [Suspect]
     Active Substance: VINCRISTINE
     Dosage: GRAALL PROTOCOL; ON DAY 15 OF INDUCTION CHEMOTHERAPY
     Route: 042
     Dates: start: 20170505
  14. CERUBIDINE [Suspect]
     Active Substance: DAUNORUBICIN HYDROCHLORIDE
     Dosage: GRAALL PROTOCOL; 30 MG/M2 ON DAY 16 OF INDUCTION CHEMOTHERAPY
     Route: 042
     Dates: start: 20170506
  15. NEFOPAM MEDISOL [Suspect]
     Active Substance: NEFOPAM HYDROCHLORIDE
     Indication: ANALGESIC INTERVENTION SUPPORTIVE THERAPY
     Dosage: DOSAGE FORM STRENGTH: 20MG/2ML
     Route: 042
     Dates: start: 20170419, end: 20170511
  16. VINCRISTINE TEVA [Suspect]
     Active Substance: VINCRISTINE
     Indication: B-CELL TYPE ACUTE LEUKAEMIA
     Dosage: GRAALL PROTOCOL; ON DAY 1 OF INDUCTION CHEMOTHERAPY
     Route: 042
     Dates: start: 20170421
  17. CERUBIDINE [Suspect]
     Active Substance: DAUNORUBICIN HYDROCHLORIDE
     Indication: B-CELL TYPE ACUTE LEUKAEMIA
     Dosage: GRAALL PROTOCOL; ON DAY 1 OF INDUCTION CHEMOTHERAPY
     Route: 042
     Dates: start: 20170421
  18. NEFOPAM MEDISOL [Suspect]
     Active Substance: NEFOPAM HYDROCHLORIDE
     Dosage: DOSAGE FORM STRENGTH: 20MG/2ML
     Route: 042
     Dates: start: 20170515
  19. KIDROLASE [Suspect]
     Active Substance: ASPARAGINASE
     Dosage: GRAALL PROTOCOL; 6000IU/M2 ON DAY 22 OF INDUCTION CHEMOTHERAPY
     Route: 042
     Dates: start: 20170512
  20. VINCRISTINE TEVA [Suspect]
     Active Substance: VINCRISTINE
     Dosage: GRAALL PROTOCOL; ON DAY 22 OF INDUCTION CHEMOTHERAPY
     Route: 042
     Dates: start: 20170512
  21. KIDROLASE [Suspect]
     Active Substance: ASPARAGINASE
     Dosage: GRAALL PROTOCOL; 6000 IU/M2 ON DAY 20 OF INDUCTION CHEMOTHERAPY
     Route: 042
     Dates: start: 20170510
  22. ENDOXAN 1000 MG, POUDRE POUR SOLUTION INJECTABLE [Suspect]
     Active Substance: CYCLOPHOSPHAMIDE
     Dosage: GRAALL PROTOCOL; 750 MG/M2 ON DAY 15 OF INDUCTION CHEMOTHERAPY
     Route: 042
     Dates: start: 20170505
  23. KIDROLASE [Suspect]
     Active Substance: ASPARAGINASE
     Dosage: GRAALL PROTOCOL; 6000 IU/M2 ON DAY 10 OF INDUCTION CHEMOTHERAPY
     Route: 042
     Dates: start: 20170430
  24. KIDROLASE [Suspect]
     Active Substance: ASPARAGINASE
     Dosage: GRAALL PROTOCOL; 6000 IU/M2 ON DAY 12 OF INDUCTION CHEMOTHERAPY
     Route: 042
     Dates: start: 20170502
  25. METHYLPREDNISOLONE. [Suspect]
     Active Substance: METHYLPREDNISOLONE
     Indication: PRODUCT USED FOR UNKNOWN INDICATION
     Route: 065
     Dates: start: 20170426

REACTIONS (2)
  - Hepatic steatosis [Recovering/Resolving]
  - Cholestasis [Unknown]

NARRATIVE: CASE EVENT DATE: 20170507
